FAERS Safety Report 19416071 (Version 3)
Quarter: 2021Q4

REPORT INFORMATION
  Report Type: Spontaneous
  Country: JP (occurrence: JP)
  Receive Date: 20210615
  Receipt Date: 20211105
  Transmission Date: 20220303
  Serious: No
  Sender: FDA-Public Use
  Company Number: JP-NOVARTISPH-NVSJ2021JP008368

PATIENT
  Age: 54 Year
  Sex: Male

DRUGS (11)
  1. COSENTYX [Suspect]
     Active Substance: SECUKINUMAB
     Indication: Psoriasis
     Dosage: 300 MG, Q4W
     Route: 058
     Dates: start: 20210326
  2. COSENTYX [Suspect]
     Active Substance: SECUKINUMAB
     Dosage: 150 MG, Q4W
     Route: 058
     Dates: start: 20210625
  3. GLYCOSAMINOGLYCANS [Suspect]
     Active Substance: GLYCOSAMINOGLYCANS
     Indication: Asteatosis
     Dosage: UNK, BID
     Route: 065
  4. PREDONINE [Concomitant]
     Active Substance: PREDNISOLONE
     Indication: Nephrotic syndrome
     Dosage: 5 MG, QD
     Route: 048
  5. RABEPRAZOLE SODIUM [Concomitant]
     Active Substance: RABEPRAZOLE SODIUM
     Indication: Gastric ulcer
     Dosage: 10 MG, QD
     Route: 048
  6. RISEDRONATE SODIUM [Concomitant]
     Active Substance: RISEDRONATE SODIUM
     Indication: Osteoporosis
     Dosage: 17.5 MG, QW
     Route: 048
  7. ZOLPIDEM TARTRATE [Concomitant]
     Active Substance: ZOLPIDEM TARTRATE
     Indication: Insomnia
     Dosage: 5 MG, QD
     Route: 048
  8. AZILSARTAN KAMEDOXOMIL [Concomitant]
     Active Substance: AZILSARTAN KAMEDOXOMIL
     Indication: Hypertension
     Dosage: 20 MG, QD
     Route: 048
  9. NIFEDIPINE [Concomitant]
     Active Substance: NIFEDIPINE
     Indication: Hypertension
     Dosage: 20 MG, BID
     Route: 048
  10. ENTECAVIR [Concomitant]
     Active Substance: ENTECAVIR
     Indication: Hepatitis B
     Dosage: UNK, QD
     Route: 048
  11. SHAKUYAKUKANZOTO [Concomitant]
     Active Substance: HERBALS
     Indication: Product used for unknown indication
     Dosage: UNK, TID
     Route: 048

REACTIONS (4)
  - Eczema [Recovering/Resolving]
  - Erythema [Unknown]
  - Skin exfoliation [Unknown]
  - Pruritus [Unknown]

NARRATIVE: CASE EVENT DATE: 20210501
